FAERS Safety Report 17580744 (Version 2)
Quarter: 2020Q2

REPORT INFORMATION
  Report Type: Spontaneous
  Country: US (occurrence: US)
  Receive Date: 20200325
  Receipt Date: 20200402
  Transmission Date: 20200713
  Serious: Yes (Hospitalization)
  Sender: FDA-Public Use
  Company Number: US-PFIZER INC-2020125093

PATIENT
  Age: 23 Year
  Sex: Male

DRUGS (15)
  1. CLOZAPINE. [Suspect]
     Active Substance: CLOZAPINE
     Indication: MENTAL DISORDER
     Dosage: 6.25 MG, UNK
  2. TESTOSTERONE. [Concomitant]
     Active Substance: TESTOSTERONE
     Indication: GENDER REASSIGNMENT THERAPY
     Dosage: UNK, WEEKLY
  3. FLUVOXAMINE [Concomitant]
     Active Substance: FLUVOXAMINE
     Indication: OBSESSIVE THOUGHTS
     Dosage: 100 MG, 1X/DAY (NIGHTLY)
  4. FAMOTIDINE. [Concomitant]
     Active Substance: FAMOTIDINE
     Indication: GASTROOESOPHAGEAL REFLUX DISEASE
     Dosage: 20 MG, 2X/DAY
  5. BUSPIRONE [Concomitant]
     Active Substance: BUSPIRONE HYDROCHLORIDE
     Indication: ANXIETY
     Dosage: 15 MG, 4X/DAY (EVERY 6 HOURS)
  6. LORAZEPAM. [Concomitant]
     Active Substance: LORAZEPAM
     Indication: ANXIETY
     Dosage: 0.5 MG, 2X/DAY (AS NEEDED)
  7. CLOZAPINE. [Suspect]
     Active Substance: CLOZAPINE
     Dosage: 162.5 MG, DAILY
  8. MIRTAZAPINE. [Concomitant]
     Active Substance: MIRTAZAPINE
     Indication: DEPRESSION
     Dosage: 60 MG, 1X/DAY (NIGHTLY)
  9. LURASIDONE [Concomitant]
     Active Substance: LURASIDONE
     Indication: FLASHBACK
     Dosage: 40 MG, 1X/DAY  (NIGHTLY)
  10. FLUDROCORTISONE [Concomitant]
     Active Substance: FLUDROCORTISONE
     Indication: HYPOTENSION
     Dosage: 0.2 MG, 2X/DAY (EVERY 12 HOURS)
  11. CLOZAPINE. [Suspect]
     Active Substance: CLOZAPINE
     Dosage: 50 MG, UNK
  12. QUETIAPINE. [Concomitant]
     Active Substance: QUETIAPINE
     Indication: INTENTIONAL SELF-INJURY
     Dosage: 12.5 MG, 1X/DAY  (NIGHTLY)
  13. GABAPENTIN. [Suspect]
     Active Substance: GABAPENTIN
     Indication: ANXIETY
     Dosage: 600 MG, 4X/DAY (EVERY 6 HOURS)
  14. CLOZAPINE. [Suspect]
     Active Substance: CLOZAPINE
     Dosage: 87.5 MG, UNK
  15. VERAPAMIL APS [Concomitant]
     Indication: TACHYCARDIA
     Dosage: 360 MG, 1X/DAY (NIGHTLY)

REACTIONS (3)
  - Periorbital oedema [Recovered/Resolved]
  - Product use in unapproved indication [Unknown]
  - Off label use [Unknown]
